FAERS Safety Report 7860792-6 (Version None)
Quarter: 2011Q4

REPORT INFORMATION
  Report Type: 
  Country: None (occurrence: None)
  Receive Date: 20111027
  Receipt Date: 20111013
  Transmission Date: 20120403
  Serious: Yes (Hospitalization)
  Sender: FDA-Public Use
  Company Number: US-BAYER-2011-043643

PATIENT
  Age: 37 Year
  Sex: Female
  Weight: 56.689 kg

DRUGS (10)
  1. NASONEX [Concomitant]
     Indication: MIGRAINE
  2. YASMIN [Suspect]
     Indication: CONTRACEPTION
  3. YASMIN [Suspect]
     Indication: ACNE
     Dosage: UNK
     Dates: start: 20060701, end: 20080201
  4. MULTI-VITAMINS [Concomitant]
     Dosage: UNK UNK, QD
     Route: 048
  5. IMITREX [Concomitant]
     Indication: MIGRAINE
     Dosage: UNK UNK, PRN
     Route: 048
     Dates: start: 20040801, end: 20090101
  6. LEXAPRO [Concomitant]
     Indication: DEPRESSION
  7. CALCIUM 600 + D [Concomitant]
     Dosage: UNK UNK, QD
     Route: 048
  8. LEVAQUIN [Concomitant]
     Dosage: 500 MG, QD
     Route: 048
     Dates: start: 20071201, end: 20080219
  9. LEXAPRO [Concomitant]
     Indication: ANXIETY
     Dosage: 30 MG, QD
     Route: 048
     Dates: start: 20041001
  10. IBUPROFEN [Concomitant]
     Indication: PAIN
     Dosage: 200 MG, PRN
     Route: 048

REACTIONS (4)
  - CHOLECYSTITIS CHRONIC [None]
  - PAIN [None]
  - INJURY [None]
  - GALLBLADDER DISORDER [None]
